FAERS Safety Report 7950501-4 (Version None)
Quarter: 2011Q4

REPORT INFORMATION
  Report Type: 
  Country: None (occurrence: None)
  Receive Date: 20111130
  Receipt Date: 20111121
  Transmission Date: 20120403
  Serious: Yes (Hospitalization, Other)
  Sender: FDA-Public Use
  Company Number: US-ASTRAZENECA-2010SE31541

PATIENT
  Age: 72 Year
  Sex: Female
  Weight: 81.6 kg

DRUGS (3)
  1. ANTIBIOTICS [Concomitant]
  2. SEROQUEL [Suspect]
     Indication: DEPRESSION
     Route: 048
     Dates: end: 20100630
  3. SEROQUEL [Suspect]
     Indication: SLEEP DISORDER
     Route: 048
     Dates: end: 20100630

REACTIONS (12)
  - DIARRHOEA [None]
  - TACHYPHRENIA [None]
  - DRUG DOSE OMISSION [None]
  - INSOMNIA [None]
  - NAUSEA [None]
  - CARDIAC DISORDER [None]
  - HEART RATE DECREASED [None]
  - HAEMORRHAGE [None]
  - HEADACHE [None]
  - HALLUCINATION, AUDITORY [None]
  - PULMONARY EMBOLISM [None]
  - THINKING ABNORMAL [None]
